FAERS Safety Report 4753503-4 (Version None)
Quarter: 2005Q3

REPORT INFORMATION
  Report Type: 
  Country: None (occurrence: None)
  Receive Date: 20050823
  Receipt Date: 20050812
  Transmission Date: 20060218
  Serious: Yes (Hospitalization)
  Sender: FDA-Public Use
  Company Number: HQWYE765708AUG05

PATIENT
  Age: 68 Year
  Sex: Male

DRUGS (17)
  1. RAPAMUNE [Suspect]
     Indication: PROPHYLAXIS AGAINST TRANSPLANT REJECTION
     Dosage: SEE IMAGE
     Route: 048
     Dates: start: 20050106, end: 20050101
  2. RAPAMUNE [Suspect]
     Indication: PROPHYLAXIS AGAINST TRANSPLANT REJECTION
     Dosage: SEE IMAGE
     Route: 048
     Dates: start: 20050101
  3. CELLCEPT [Suspect]
     Indication: PROPHYLAXIS AGAINST TRANSPLANT REJECTION
     Dosage: ORAL
     Route: 048
     Dates: end: 20050101
  4. PREDNISONE [Suspect]
     Indication: PROPHYLAXIS AGAINST TRANSPLANT REJECTION
     Dosage: 10 MG 1X PER 1 DAY, ORAL
     Route: 048
  5. ZENAPAX [Suspect]
     Indication: PROPHYLAXIS AGAINST TRANSPLANT REJECTION
  6. LOPRESSOR [Concomitant]
  7. LASIX [Concomitant]
  8. CLONIDINE [Concomitant]
  9. NORVASC [Concomitant]
  10. FLOMAX [Concomitant]
  11. ACYCLOVIR [Concomitant]
  12. LIPITOR [Concomitant]
  13. DASONE (DAPSONE) [Concomitant]
  14. NACRODANTIN (NITROFURANTOIN) [Concomitant]
  15. LANTUS [Concomitant]
  16. NOVOLOG [Concomitant]
  17. PROCRIT [Concomitant]

REACTIONS (26)
  - ALANINE AMINOTRANSFERASE INCREASED [None]
  - ANAEMIA [None]
  - ASPARTATE AMINOTRANSFERASE INCREASED [None]
  - ATELECTASIS [None]
  - BLOOD ALBUMIN DECREASED [None]
  - BLOOD GLUCOSE INCREASED [None]
  - BLOOD URINE PRESENT [None]
  - BRONCHITIS [None]
  - CREPITATIONS [None]
  - CYTOMEGALOVIRUS INFECTION [None]
  - DEEP VEIN THROMBOSIS [None]
  - DIVERTICULUM INTESTINAL [None]
  - ERYTHEMA [None]
  - FLUID OVERLOAD [None]
  - GASTRITIS [None]
  - GENERALISED OEDEMA [None]
  - HAEMOGLOBIN DECREASED [None]
  - JAUNDICE CHOLESTATIC [None]
  - LIVER DISORDER [None]
  - MASS [None]
  - NEPHRITIS INTERSTITIAL [None]
  - PRURITUS [None]
  - RENAL FAILURE [None]
  - RHONCHI [None]
  - TRANSAMINASES INCREASED [None]
  - VIRAL INFECTION [None]
